FAERS Safety Report 5449622-X (Version None)
Quarter: 2007Q3

REPORT INFORMATION
  Report Type: 
  Country: None (occurrence: None)
  Receive Date: 20070910
  Receipt Date: 20070824
  Transmission Date: 20080115
  Serious: Yes (Disabling)
  Sender: FDA-Public Use
  Company Number: 2007RR-09594

PATIENT
  Age: 56 Year
  Sex: Female

DRUGS (11)
  1. FLUOXETINE [Suspect]
     Indication: DEPRESSION
     Dosage: 40 MG, QD, ORAL
     Route: 048
     Dates: start: 20010510
  2. ACETAMINOPHEN W/ CODEINE [Suspect]
     Indication: ARTHRALGIA
     Dosage: 2 DF, QID, ORAL
     Route: 048
     Dates: start: 20011121
  3. OXYCONTIN [Suspect]
     Indication: POSTOPERATIVE ANALGESIA
     Dosage: 20 MG, BID; 40 MG, BID, ORAL; 80 MG, BID, ORAL
     Route: 048
     Dates: end: 20070630
  4. OXYCONTIN [Suspect]
     Indication: POSTOPERATIVE ANALGESIA
     Dosage: 20 MG, BID; 40 MG, BID, ORAL; 80 MG, BID, ORAL
     Route: 048
     Dates: start: 20070412
  5. TRAMADOL HCL [Suspect]
     Indication: POSTOPERATIVE ANALGESIA
     Dosage: 100 MG, QD, ORAL
     Route: 048
     Dates: start: 20070412, end: 20070430
  6. AMLODIPINE [Concomitant]
  7. BENDROFLUMETHIAZIDE (BENDROFLUMETHIAZIDE) [Concomitant]
  8. DICLOFENAC SODIUM (DICLOFENAC) [Concomitant]
  9. LANSOPRAZOLE [Concomitant]
  10. RAMIPRIL [Concomitant]
  11. SIMVASTATIN [Concomitant]

REACTIONS (3)
  - DRUG INTERACTION [None]
  - HALLUCINATION [None]
  - MYOCLONUS [None]
